FAERS Safety Report 9908700 (Version 2)
Quarter: 2014Q1

REPORT INFORMATION
  Report Type: Spontaneous
  Country: US (occurrence: US)
  Receive Date: 20140219
  Receipt Date: 20140317
  Transmission Date: 20141002
  Serious: No
  Sender: FDA-Public Use
  Company Number: US-PFIZER INC-2014043827

PATIENT
  Age: 46 Year
  Sex: Female
  Weight: 81.63 kg

DRUGS (2)
  1. XALATAN [Suspect]
     Indication: INTRAOCULAR PRESSURE INCREASED
     Dosage: 1 GTT, DAILY (1 DROP AT BEDTIME LEFT EYE)
     Route: 047
     Dates: start: 20110506, end: 20110508
  2. XALATAN [Suspect]
     Indication: OPEN ANGLE GLAUCOMA

REACTIONS (1)
  - Eye irritation [Recovered/Resolved]
